FAERS Safety Report 16875579 (Version 2)
Quarter: 2019Q4

REPORT INFORMATION
  Report Type: Spontaneous
  Country: CA (occurrence: CA)
  Receive Date: 20191002
  Receipt Date: 20191129
  Transmission Date: 20200122
  Serious: Yes (Death)
  Sender: FDA-Public Use
  Company Number: CA-CELLTRION INC.-2019CA021533

PATIENT

DRUGS (38)
  1. FOLIC ACID. [Concomitant]
     Active Substance: FOLIC ACID
     Dosage: UNK
  2. JAMP-VITAMINE D3 [Concomitant]
     Dosage: UNK
  3. DILAUDID [Concomitant]
     Active Substance: HYDROMORPHONE HYDROCHLORIDE
     Dosage: UNK
  4. JAMP ACETAMINOPHEN [Concomitant]
     Active Substance: ACETAMINOPHEN
     Dosage: UNK
  5. JAMP FOLIC ACID [Concomitant]
     Dosage: UNK
  6. INFLECTRA [Suspect]
     Active Substance: INFLIXIMAB-DYYB
     Dosage: 300 MG/Q 2, 6 WEEKS,  THEN EVERY 8 WEEKS
     Route: 042
     Dates: start: 20190508
  7. APO-PAROXETINE [Concomitant]
     Active Substance: PAROXETINE
     Dosage: UNK
  8. PROCHLORPERAZINE. [Concomitant]
     Active Substance: PROCHLORPERAZINE
     Dosage: UNK
  9. VOLTAREN [Concomitant]
     Active Substance: DICLOFENAC SODIUM
     Dosage: UNK
     Route: 061
  10. PREDNISONE. [Concomitant]
     Active Substance: PREDNISONE
     Dosage: 40 MG DIE FOR 2 WEEKS THEN LOWER BY 1 TAB DIE PER WEEK THEN STOP
     Route: 048
  11. RATIO-CLOBETASOL [Concomitant]
     Dosage: UNK
  12. JAMP-CALCIUM + VITAMIN D [Concomitant]
     Dosage: UNK
  13. FLOVENT HFA [Concomitant]
     Active Substance: FLUTICASONE PROPIONATE
     Dosage: UNK
  14. SALBUTAMOL HFA [Concomitant]
     Active Substance: ALBUTEROL
     Dosage: UNK
  15. APO-PROCHLORAZINE [Concomitant]
     Active Substance: PROCHLORPERAZINE MALEATE
     Dosage: UNK
  16. PMS-ONDANSETRON [Concomitant]
     Dosage: UNK
  17. PMS-HYDROMORPHONE [Concomitant]
     Active Substance: HYDROMORPHONE HYDROCHLORIDE
     Dosage: UNK
  18. SULFATRIM [Concomitant]
     Active Substance: SULFAMETHOXAZOLE\TRIMETHOPRIM
     Dosage: UNK
  19. VITAMIN B12 [Concomitant]
     Active Substance: CYANOCOBALAMIN
     Dosage: UNK
     Route: 030
  20. INFLECTRA [Suspect]
     Active Substance: INFLIXIMAB-DYYB
     Dosage: 300 MG/Q 2, 6 WEEKS,  THEN EVERY 8 WEEKS
     Route: 042
     Dates: start: 20190731, end: 20190731
  21. CHAMPIX [Concomitant]
     Active Substance: VARENICLINE TARTRATE
     Dosage: UNK
  22. ACETAMINOPHEN. [Concomitant]
     Active Substance: ACETAMINOPHEN
     Dosage: UNK
  23. DEXILANT [Concomitant]
     Active Substance: DEXLANSOPRAZOLE
     Dosage: UNK
  24. LOPERAMID [Concomitant]
     Active Substance: LOPERAMIDE
     Dosage: UNK
     Route: 065
  25. FENTANYL. [Concomitant]
     Active Substance: FENTANYL
     Dosage: UNK
  26. PMS-LORAZEPAM [Concomitant]
     Dosage: UNK
  27. TEVA QUETIAPINE [Concomitant]
     Active Substance: QUETIAPINE
     Dosage: UNK
  28. INFLECTRA [Suspect]
     Active Substance: INFLIXIMAB-DYYB
     Dosage: 300 MG/Q 2, 6 WEEKS,  THEN EVERY 8 WEEKS
     Route: 042
     Dates: start: 20190605
  29. SENNA ALEXANDRINA [Concomitant]
     Active Substance: SENNA LEAF
     Dosage: UNK
  30. QUETIAPINE. [Concomitant]
     Active Substance: QUETIAPINE
     Dosage: UNK
  31. JAMP SENNA [Concomitant]
     Dosage: UNK
  32. APO SULFATRIM [Concomitant]
     Active Substance: SULFAMETHOXAZOLE\TRIMETHOPRIM
     Dosage: UNK
  33. PMS PREGABALIN [Concomitant]
     Active Substance: PREGABALIN
     Dosage: UNK
  34. INFLECTRA [Suspect]
     Active Substance: INFLIXIMAB-DYYB
     Indication: COLITIS ULCERATIVE
     Dosage: 300 MG/Q 2, 6 WEEKS,  THEN EVERY 8 WEEKS
     Route: 042
     Dates: start: 20190424
  35. LAX-A-DAY [Concomitant]
     Dosage: UNK
     Route: 065
  36. PREGABALIN. [Concomitant]
     Active Substance: PREGABALIN
     Dosage: UNK
  37. XARELTO [Concomitant]
     Active Substance: RIVAROXABAN
     Dosage: UNK
  38. DEXAMETHASONE. [Concomitant]
     Active Substance: DEXAMETHASONE
     Dosage: UNK

REACTIONS (6)
  - Heart rate irregular [Unknown]
  - Off label use [Unknown]
  - Intentional product use issue [Unknown]
  - Death [Fatal]
  - Blood pressure fluctuation [Unknown]
  - Condition aggravated [Recovered/Resolved]

NARRATIVE: CASE EVENT DATE: 20190508
